FAERS Safety Report 9382082 (Version 1)
Quarter: 2013Q3

REPORT INFORMATION
  Report Type: Spontaneous
  Country: FR (occurrence: FR)
  Receive Date: 20130703
  Receipt Date: 20130703
  Transmission Date: 20140515
  Serious: Yes (Death)
  Sender: FDA-Public Use
  Company Number: FR-GILEAD-2013-0078257

PATIENT
  Age: 69 Year
  Sex: Male

DRUGS (12)
  1. VIREAD [Suspect]
     Indication: HEPATITIS B
     Dosage: 245 MG, UNK
     Route: 048
     Dates: start: 20130508, end: 20130528
  2. SEROPLEX [Suspect]
     Indication: DEPRESSION
     Dosage: 10 MG, UNK
     Route: 048
     Dates: start: 20130514, end: 20130528
  3. ALDACTONE /00006201/ [Suspect]
     Indication: ASCITES
     Dosage: 25 MG, UNK
     Route: 048
     Dates: start: 20130507, end: 20130518
  4. NOROXINE [Suspect]
     Indication: PERITONITIS
     Dosage: 400 MG, UNK
     Route: 048
     Dates: start: 20130507, end: 20130509
  5. EUPANTOL [Suspect]
     Indication: PRODUCT USED FOR UNKNOWN INDICATION
     Dosage: 40 MG, BID
     Route: 042
     Dates: start: 20130516, end: 20130606
  6. CEFTRIAXONE PANPHARMA [Suspect]
     Indication: PRODUCT USED FOR UNKNOWN INDICATION
     Dosage: UNK
     Route: 042
     Dates: start: 20130516, end: 20130606
  7. AVLOCARDYL                         /00030001/ [Concomitant]
     Indication: HEPATITIS B
     Dosage: 80 MG, QD
     Route: 048
     Dates: start: 20130506, end: 20130606
  8. VITAMIN B1 [Concomitant]
     Indication: VITAMIN SUPPLEMENTATION
     Dosage: 60 MG, UNK
     Route: 048
     Dates: start: 20130425, end: 20130606
  9. VITAMIN B6 [Concomitant]
     Indication: VITAMIN SUPPLEMENTATION
     Dosage: 500 MG, UNK
     Route: 048
     Dates: start: 20130425, end: 20130606
  10. PHOSPHONEUROS [Concomitant]
     Indication: MALNUTRITION
     Dosage: 50 DF, TID
     Route: 048
  11. LOVENOX [Concomitant]
     Indication: THROMBOSIS PROPHYLAXIS
     Dosage: 4000 IU, UNK
     Route: 058
     Dates: start: 20130425, end: 20130606
  12. MAG 2                              /00454301/ [Concomitant]
     Dosage: 2 DF, QD
     Route: 048
     Dates: start: 20130425, end: 20130606

REACTIONS (1)
  - Prothrombin level decreased [Fatal]
